FAERS Safety Report 24630770 (Version 1)
Quarter: 2024Q4

REPORT INFORMATION
  Report Type: Spontaneous
  Country: US (occurrence: None)
  Receive Date: 20241116
  Receipt Date: 20241116
  Transmission Date: 20250114
  Serious: No
  Sender: Public
  Company Number: None

PATIENT
  Sex: 0

DRUGS (1)
  1. ASTEPRO [Suspect]
     Active Substance: AZELASTINE HYDROCHLORIDE
     Indication: Hypersensitivity
     Dates: start: 20241115, end: 20241115

REACTIONS (7)
  - Sneezing [None]
  - Sinus congestion [None]
  - Headache [None]
  - Eye irritation [None]
  - Nasal discomfort [None]
  - Paraesthesia [None]
  - Rhinorrhoea [None]

NARRATIVE: CASE EVENT DATE: 20241115
